FAERS Safety Report 8106531 (Version 2)
Quarter: 2014Q2

REPORT INFORMATION
  Report Type: Spontaneous
  Country: ES (occurrence: ES)
  Receive Date: 20110825
  Receipt Date: 20140505
  Transmission Date: 20141212
  Serious: Yes (Hospitalization, Other)
  Sender: FDA-Public Use
  Company Number: ES-JNJFOC-20110808415

PATIENT
  Age: 28 Year
  Sex: Male

DRUGS (3)
  1. REMICADE [Suspect]
     Indication: CROHN^S DISEASE
     Route: 042
  2. DEXCHLORPHENIRAMINE [Concomitant]
     Indication: HYPERSENSITIVITY
  3. HYDROCORTISONE [Concomitant]
     Indication: HYPERSENSITIVITY

REACTIONS (1)
  - Agranulocytosis [Recovered/Resolved]
